FAERS Safety Report 7328219-0 (Version None)
Quarter: 2011Q1

REPORT INFORMATION
  Report Type: 
  Country: None (occurrence: None)
  Receive Date: 20110218
  Receipt Date: 20110207
  Transmission Date: 20110831
  Serious: Yes (Hospitalization, Other)
  Sender: FDA-Public Use
  Company Number: 2011MA001269

PATIENT
  Sex: Male

DRUGS (2)
  1. LYRICA [Suspect]
     Indication: GENERALISED ANXIETY DISORDER
  2. DIAZEPAM [Suspect]

REACTIONS (3)
  - DRUG DEPENDENCE [None]
  - SUICIDAL BEHAVIOUR [None]
  - DRUG ABUSE [None]
